FAERS Safety Report 6519666-5 (Version None)
Quarter: 2009Q4

REPORT INFORMATION
  Report Type: 
  Country: None (occurrence: None)
  Receive Date: 20091228
  Receipt Date: 20091217
  Transmission Date: 20100525
  Serious: Yes (Disabling, Other)
  Sender: FDA-Public Use
  Company Number: JP-PFIZER INC-2009312599

PATIENT
  Age: 65 Year
  Sex: Female

DRUGS (5)
  1. XALATAN [Suspect]
     Indication: GLAUCOMA
     Dosage: UNK
     Route: 031
     Dates: start: 20050101
  2. TIMOPTIC [Concomitant]
     Indication: GLAUCOMA
     Dosage: UNK
     Route: 031
  3. AZOPT [Concomitant]
     Indication: GLAUCOMA
     Dosage: UNK
     Route: 031
  4. RHEUMATREX [Concomitant]
     Indication: RHEUMATOID ARTHRITIS
     Dosage: UNK
     Route: 048
  5. REMICADE [Concomitant]
     Indication: RHEUMATOID ARTHRITIS
     Dosage: UNK
     Route: 042

REACTIONS (1)
  - VISUAL ACUITY REDUCED [None]
